FAERS Safety Report 6622242-7 (Version None)
Quarter: 2010Q1

REPORT INFORMATION
  Report Type: 
  Country: None (occurrence: None)
  Receive Date: 20100310
  Receipt Date: 20100303
  Transmission Date: 20100710
  Serious: Yes (Other)
  Sender: FDA-Public Use
  Company Number: US-RB-004216-10

PATIENT
  Age: 82 Year
  Sex: Male

DRUGS (2)
  1. MUCINEX DM [Suspect]
     Dosage: TOOK 1 DOSE ONLY
     Route: 048
     Dates: start: 20100225
  2. MUCINEX DM [Suspect]
     Indication: COUGH
     Dosage: TOOK 1 DOSE ONLY
     Route: 048
     Dates: start: 20100225

REACTIONS (6)
  - AGITATION [None]
  - DIARRHOEA [None]
  - HEADACHE [None]
  - INSOMNIA [None]
  - NERVOUSNESS [None]
  - OROPHARYNGEAL PAIN [None]
